FAERS Safety Report 10925091 (Version 2)
Quarter: 2015Q2

REPORT INFORMATION
  Report Type: Spontaneous
  Country: US (occurrence: US)
  Receive Date: 20150318
  Receipt Date: 20150524
  Transmission Date: 20150821
  Serious: No
  Sender: FDA-Public Use
  Company Number: US-JNJFOC-20121004447

PATIENT
  Age: 74 Year
  Sex: Male

DRUGS (8)
  1. NIZORAL A-D [Suspect]
     Active Substance: KETOCONAZOLE
     Indication: DANDRUFF
     Dosage: DOSAGE: A COUPLE KIDNEY BEANS SIZE EVERY 1-2 WEEKS. PRODUCT USED FOR 2 TO 3 YEARS
     Route: 061
  2. UNSPECIFIED SHAMPOO [Suspect]
     Active Substance: UNSPECIFIED INGREDIENT
     Indication: PRODUCT USED FOR UNKNOWN INDICATION
     Dosage: EVERY COUPLE OF WEEKS
     Route: 065
  3. DHS ZINC [Suspect]
     Active Substance: PYRITHIONE ZINC
     Indication: DANDRUFF
     Dosage: EVERY COUPLE OF WEEKS
     Route: 065
  4. DESONIDE. [Concomitant]
     Active Substance: DESONIDE
     Indication: SKIN IRRITATION
     Dosage: EVERY OTHER DAY
     Route: 065
  5. NIZORAL A-D [Suspect]
     Active Substance: KETOCONAZOLE
     Indication: DERMATITIS
     Dosage: DOSAGE: A COUPLE KIDNEY BEANS SIZE EVERY 1-2 WEEKS. PRODUCT USED FOR 2 TO 3 YEARS
     Route: 061
  6. SELSUN BLUE [Suspect]
     Active Substance: SELENIUM SULFIDE
     Indication: DANDRUFF
     Dosage: EVERY COUPLE OF WEEKS
     Route: 065
  7. ALL OTHER THERAPEUTIC PRODUCT [Suspect]
     Active Substance: UNSPECIFIED INGREDIENT
     Indication: PRODUCT USED FOR UNKNOWN INDICATION
     Route: 065
  8. AN UNKNOWN MEDICATION [Concomitant]
     Active Substance: UNSPECIFIED INGREDIENT
     Indication: PRODUCT USED FOR UNKNOWN INDICATION
     Route: 065

REACTIONS (3)
  - Product use issue [Unknown]
  - Expired product administered [Unknown]
  - Rash [Not Recovered/Not Resolved]
